FAERS Safety Report 24313005 (Version 11)
Quarter: 2025Q3

REPORT INFORMATION
  Report Type: Report from Study
  Country: EU (occurrence: EU)
  Receive Date: 20240912
  Receipt Date: 20250718
  Transmission Date: 20251021
  Serious: Yes (Hospitalization, Other)
  Sender: TAKEDA
  Company Number: EU-TAKEDA-2024TUS050708

PATIENT
  Age: 5 Year
  Sex: Male

DRUGS (10)
  1. TEDUGLUTIDE [Suspect]
     Active Substance: TEDUGLUTIDE
     Indication: Short-bowel syndrome
     Dosage: 0.3 MILLIGRAM, QD
     Dates: start: 202109, end: 20220425
  2. TEDUGLUTIDE [Suspect]
     Active Substance: TEDUGLUTIDE
     Dosage: 0.35 MILLIGRAM, QD
     Dates: start: 20220425, end: 20240115
  3. TEDUGLUTIDE [Suspect]
     Active Substance: TEDUGLUTIDE
     Dosage: 0.4 MILLIGRAM, QD
     Dates: start: 20240115, end: 20240826
  4. TEDUGLUTIDE [Suspect]
     Active Substance: TEDUGLUTIDE
     Dosage: 0.5 MILLIGRAM, QD
     Dates: start: 20240826
  5. URSODIOL [Concomitant]
     Active Substance: URSODIOL
     Indication: Cholestasis
     Dosage: 50 MILLIGRAM, TID
     Dates: start: 20240115
  6. Hibor [Concomitant]
     Indication: Thrombosis
     Dosage: 2000 INTERNATIONAL UNIT, QD
     Dates: start: 20240115
  7. Salvacolina [Concomitant]
     Indication: Antidiarrhoeal supportive care
     Dosage: 0.4 MILLIGRAM, BID
     Dates: start: 20240115
  8. CEFAZOLIN [Concomitant]
     Active Substance: CEFAZOLIN
     Indication: Vascular device infection
  9. IRON [Concomitant]
     Active Substance: IRON
     Indication: Folate deficiency
     Dosage: UNK, 2/MONTH
     Dates: start: 202211
  10. CHOLESTYRAMINE [Concomitant]
     Active Substance: CHOLESTYRAMINE
     Indication: Hypercholesterolaemia
     Dosage: 0.4 GRAM, TID
     Dates: start: 20240115

REACTIONS (10)
  - Dehydration [Recovered/Resolved]
  - Bronchospasm [Recovered/Resolved]
  - Device breakage [Recovered/Resolved]
  - Vascular device infection [Recovered/Resolved]
  - Catarrh [Recovered/Resolved]
  - Frequent bowel movements [Recovered/Resolved]
  - Thyroxine decreased [Recovered/Resolved]
  - High density lipoprotein decreased [Not Recovered/Not Resolved]
  - Hypoferritinaemia [Recovered/Resolved]
  - Vomiting [Recovered/Resolved]

NARRATIVE: CASE EVENT DATE: 20240401
